FAERS Safety Report 21783642 (Version 1)
Quarter: 2022Q4

REPORT INFORMATION
  Report Type: Report from Study
  Country: US (occurrence: US)
  Receive Date: 20221227
  Receipt Date: 20221227
  Transmission Date: 20230113
  Serious: No
  Sender: FDA-Public Use
  Company Number: US-ABBVIE-4211285

PATIENT
  Age: 45 Year
  Sex: Female

DRUGS (1)
  1. HUMIRA [Suspect]
     Active Substance: ADALIMUMAB
     Indication: Product used for unknown indication
     Route: 058
     Dates: end: 20221018

REACTIONS (4)
  - Visual impairment [Not Recovered/Not Resolved]
  - Abdominal distension [Not Recovered/Not Resolved]
  - Tension headache [Not Recovered/Not Resolved]
  - Inflammation [Not Recovered/Not Resolved]

NARRATIVE: CASE EVENT DATE: 20221114
